FAERS Safety Report 6269616-4 (Version None)
Quarter: 2009Q3

REPORT INFORMATION
  Report Type: 
  Country: None (occurrence: None)
  Receive Date: 20090714
  Receipt Date: 20090702
  Transmission Date: 20100115
  Serious: Yes (Hospitalization)
  Sender: FDA-Public Use
  Company Number: CERZ-1000744

PATIENT
  Age: 54 Year
  Sex: Female

DRUGS (1)
  1. CEREZYME [Suspect]
     Indication: GAUCHER'S DISEASE
     Dosage: 1600 U, Q2W, INTRAVENOUS
     Route: 042
     Dates: start: 19970506

REACTIONS (6)
  - ARTHROPATHY [None]
  - FATIGUE [None]
  - LIMB INJURY [None]
  - PANCREATIC DISORDER [None]
  - SMALL INTESTINE CARCINOMA [None]
  - WEIGHT INCREASED [None]
